FAERS Safety Report 5952003-3 (Version None)
Quarter: 2008Q4

REPORT INFORMATION
  Report Type: 
  Country: None (occurrence: None)
  Receive Date: 20081113
  Receipt Date: 20071109
  Transmission Date: 20090506
  Serious: No
  Sender: FDA-Public Use
  Company Number: A0693603A

PATIENT
  Sex: Male

DRUGS (1)
  1. CARVEDILOL [Suspect]
     Dosage: 50MG TWICE PER DAY
     Route: 048
     Dates: start: 20071001

REACTIONS (1)
  - EJECTION FRACTION DECREASED [None]
